FAERS Safety Report 8306884-9 (Version None)
Quarter: 2012Q2

REPORT INFORMATION
  Report Type: 
  Country: None (occurrence: None)
  Receive Date: 20120420
  Receipt Date: 20120417
  Transmission Date: 20120825
  Serious: Yes (Death, Hospitalization)
  Sender: FDA-Public Use
  Company Number: 2008-182753-NL

PATIENT
  Age: 25 Year
  Sex: Female
  Weight: 54.4316 kg

DRUGS (2)
  1. ORTHO EVRA [Concomitant]
  2. NUVARING [Suspect]
     Indication: CONTRACEPTION
     Dosage: 1 DF, QM, VAG
     Route: 067
     Dates: start: 20061201, end: 20071104

REACTIONS (20)
  - ASTHENIA [None]
  - PAIN [None]
  - GROIN ABSCESS [None]
  - TOXIC SHOCK SYNDROME [None]
  - SEPSIS [None]
  - RESPIRATORY DISTRESS [None]
  - PULMONARY HYPERTENSION [None]
  - PLEURAL EFFUSION [None]
  - RENAL FAILURE ACUTE [None]
  - MULTI-ORGAN FAILURE [None]
  - METABOLIC ACIDOSIS [None]
  - SWELLING [None]
  - BURNING SENSATION [None]
  - CELLULITIS [None]
  - PULMONARY OEDEMA [None]
  - CELLULITIS GANGRENOUS [None]
  - STREPTOCOCCAL INFECTION [None]
  - RESPIRATORY FAILURE [None]
  - TRICUSPID VALVE INCOMPETENCE [None]
  - ABSCESS [None]
